FAERS Safety Report 9987973 (Version 2)
Quarter: 2014Q1

REPORT INFORMATION
  Report Type: Spontaneous
  Country: US (occurrence: US)
  Receive Date: 20140307
  Receipt Date: 20140307
  Transmission Date: 20141002
  Serious: Yes (Other)
  Sender: FDA-Public Use
  Company Number: US-RB-053658-13

PATIENT
  Age: 38 Year
  Sex: Female

DRUGS (6)
  1. SUBOXONE FILM [Suspect]
     Indication: DRUG DEPENDENCE
     Dosage: SUBOXONE FILM
     Route: 060
     Dates: start: 2011, end: 201304
  2. SUBOXONE FILM [Suspect]
     Dosage: SUBOXONE FILM; EXPOSED TRANSEMINALLY
     Route: 050
     Dates: start: 201304
  3. SUBOXONE FILM [Suspect]
     Dosage: SUBOXONE FILM - TAPERED DOWN TO 16 MG AT TIME OF MISCARRIAGE
     Route: 060
     Dates: start: 201304
  4. SUBUTEX [Suspect]
     Indication: DRUG DEPENDENCE
     Dosage: STARTED AT 24 MG DAILY AND THEN TAPERED DOWN TO 8 MG TWICE DAILY AT THE TIME OF MISSCARRIAGE
     Route: 060
     Dates: start: 201304
  5. ALBUTEROL [Concomitant]
     Indication: ASTHMA
     Dosage: DOSING DETAILS UNKNOWN
     Route: 065
  6. ADVAIR [Concomitant]
     Indication: ASTHMA
     Dosage: DOSING DETAILS UNKNOWN
     Route: 065

REACTIONS (5)
  - Maternal exposure during pregnancy [Recovered/Resolved]
  - Intentional underdose [Unknown]
  - Exposure via father [Recovered/Resolved]
  - Uterine contractions during pregnancy [Recovered/Resolved]
  - Abortion spontaneous [Recovered/Resolved]
